FAERS Safety Report 21717503 (Version 2)
Quarter: 2023Q1

REPORT INFORMATION
  Report Type: Other
  Country: US (occurrence: US)
  Receive Date: 20221212
  Receipt Date: 20230220
  Transmission Date: 20230417
  Serious: No
  Sender: FDA-Public Use
  Company Number: US-Global Blood Therapeutics Inc-US-GBT-21-00089

PATIENT
  Age: 61 Year
  Sex: Male

DRUGS (6)
  1. OXBRYTA [Suspect]
     Active Substance: VOXELOTOR
     Indication: Sickle cell disease
     Route: 048
     Dates: start: 20210105
  2. COVID BOOSTER SHOT [Concomitant]
     Indication: COVID-19 immunisation
     Dosage: NOT PROVIDED
     Dates: start: 20211117
  3. COVID BOOSTER SHOT [Concomitant]
     Indication: COVID-19 immunisation
     Dosage: NOT PROVIDED
     Dates: start: 20211117
  4. UNSPECIFIED INGREDIENT [Concomitant]
     Active Substance: UNSPECIFIED INGREDIENT
     Indication: Glaucoma
     Dosage: NOT PROVIDED
  5. COVID VACCINATION [Concomitant]
     Indication: COVID-19 immunisation
     Dosage: NOT PROVIDED
  6. COVID VACCINATION [Concomitant]
     Indication: COVID-19 immunisation
     Dosage: NOT PROVIDED

REACTIONS (8)
  - Chest pain [Recovered/Resolved]
  - Increased appetite [Unknown]
  - Flatulence [Not Recovered/Not Resolved]
  - Pain [Unknown]
  - Headache [Unknown]
  - Frequent bowel movements [Unknown]
  - Diarrhoea [Not Recovered/Not Resolved]
  - Product use complaint [Unknown]

NARRATIVE: CASE EVENT DATE: 20210101
